FAERS Safety Report 20422843 (Version 1)
Quarter: 2022Q1

REPORT INFORMATION
  Report Type: Spontaneous
  Country: US (occurrence: US)
  Receive Date: 20220203
  Receipt Date: 20220203
  Transmission Date: 20220424
  Serious: Yes (Other)
  Sender: FDA-Public Use
  Company Number: US-BEIGENE-BGN-2022-000851

PATIENT

DRUGS (9)
  1. BRUKINSA [Suspect]
     Active Substance: ZANUBRUTINIB
     Indication: Non-Hodgkin^s lymphoma
     Dosage: 160 MILLIGRAM, BID
     Route: 048
     Dates: start: 202110
  2. ALFUZOSIN [Concomitant]
     Active Substance: ALFUZOSIN
     Indication: Bladder discomfort
     Dosage: 10 MILLIGRAM
  3. MIRABEGRON [Concomitant]
     Active Substance: MIRABEGRON
     Indication: Bladder discomfort
     Dosage: 25 MILLIGRAM
  4. BACTRIM [Concomitant]
     Active Substance: SULFAMETHOXAZOLE\TRIMETHOPRIM
     Indication: Respiratory disorder prophylaxis
     Dosage: UNK, 3 TIMES/WK
  5. ALLOPURINOL [Concomitant]
     Active Substance: ALLOPURINOL
     Dosage: 300 MILLIGRAM
  6. ACYCLOVIR [Concomitant]
     Active Substance: ACYCLOVIR
     Dosage: 400 MILLIGRAM
  7. FAMOTIDINE [Concomitant]
     Active Substance: FAMOTIDINE
     Indication: Dyspepsia
     Dosage: 20 MILLIGRAM
  8. CELEBREX [Concomitant]
     Active Substance: CELECOXIB
     Indication: Musculoskeletal pain
     Dosage: STARTED 1 WEEK AGO
  9. TYLENOL [Concomitant]
     Active Substance: ACETAMINOPHEN
     Indication: Pain
     Dosage: UNK

REACTIONS (8)
  - Blast cell crisis [Unknown]
  - Myalgia [Not Recovered/Not Resolved]
  - Pain in extremity [Unknown]
  - Arthralgia [Unknown]
  - Nausea [Unknown]
  - Decreased appetite [Unknown]
  - White blood cell count decreased [Unknown]
  - Haemoglobin decreased [Recovered/Resolved]

NARRATIVE: CASE EVENT DATE: 20211001
